FAERS Safety Report 13112496 (Version 1)
Quarter: 2017Q1

REPORT INFORMATION
  Report Type: Spontaneous
  Country: US (occurrence: US)
  Receive Date: 20170113
  Receipt Date: 20170113
  Transmission Date: 20170428
  Serious: No
  Sender: FDA-Public Use
  Company Number: US-JNJFOC-20161123928

PATIENT
  Sex: Male

DRUGS (17)
  1. HUMALOG [Concomitant]
     Active Substance: INSULIN LISPRO
     Dosage: 3 INJECTION DAILY ON SLIDING SCALE
     Route: 065
  2. COSOPT [Concomitant]
     Active Substance: DORZOLAMIDE HYDROCHLORIDE\TIMOLOL MALEATE
     Indication: GLAUCOMA
     Dosage: 1 DROP IN MORNING IN EACH EYES
     Route: 031
  3. TUDORZA PRESSAIR [Concomitant]
     Active Substance: ACLIDINIUM BROMIDE
     Indication: CHRONIC OBSTRUCTIVE PULMONARY DISEASE
     Dosage: 2 PUFFS PER DAY AM/PM
     Route: 055
  4. ASPRIN [Concomitant]
     Active Substance: ASPIRIN
     Dosage: 1 PER MORNING
     Route: 065
  5. PREDNISONE. [Concomitant]
     Active Substance: PREDNISONE
     Dosage: 5MG 1 TWICE DAY WITH FOOD
     Route: 065
  6. ENZALUTAMIDE [Suspect]
     Active Substance: ENZALUTAMIDE
     Indication: PROSTATE CANCER METASTATIC
     Route: 048
     Dates: start: 20160811, end: 20160820
  7. BICALUTAMIDE. [Concomitant]
     Active Substance: BICALUTAMIDE
     Dosage: 1 TABLER PER MORNING
     Route: 065
  8. XGEVA [Concomitant]
     Active Substance: DENOSUMAB
     Route: 065
  9. MEGESTROL [Concomitant]
     Active Substance: MEGESTROL
     Indication: HOT FLUSH
     Dosage: 1 TABLET PER MORNING
     Route: 065
  10. LUMIGAN [Concomitant]
     Active Substance: BIMATOPROST
     Indication: GLAUCOMA
     Dosage: 1 DROP AT BED TIME IN EACH EYES
     Route: 031
  11. LUPRON [Concomitant]
     Active Substance: LEUPROLIDE ACETATE
     Route: 065
  12. TRADJENTA [Concomitant]
     Active Substance: LINAGLIPTIN
     Route: 065
  13. ZYTIGA [Suspect]
     Active Substance: ABIRATERONE ACETATE
     Indication: PRODUCT USED FOR UNKNOWN INDICATION
     Dosage: 250MG X4 TABLETS
     Route: 048
     Dates: start: 20160617, end: 20160908
  14. CALCIUM CITRATE WITH VITAMIN D3 [Concomitant]
     Dosage: 1000 IU D3
     Route: 065
  15. TOUJEO [Concomitant]
     Active Substance: INSULIN GLARGINE
     Dosage: 22 UNITS AND 1 INJECTION AT BED TIME
     Route: 065
  16. SUPER B COMPLEX [Concomitant]
     Active Substance: CYANOCOBALAMIN\DEXPANTHENOL\NIACINAMIDE\PYRIDOXINE HYDROCHLORIDE\RIBOFLAVIN 5^-PHOSPHATE SODIUM\THIAMINE HYDROCHLORIDE\VITAMIN B COMPLEX
     Dosage: 1 IN MORNING
     Route: 065
  17. PRAVACHOL [Concomitant]
     Active Substance: PRAVASTATIN SODIUM
     Dosage: 1 TABLET PER MORNING
     Route: 065

REACTIONS (15)
  - Nasal congestion [Unknown]
  - Hunger [Recovered/Resolved]
  - Weight decreased [Recovering/Resolving]
  - Productive cough [Unknown]
  - Abdominal pain [Recovered/Resolved]
  - Sleep disorder [Recovered/Resolved]
  - Blood glucose increased [Unknown]
  - Musculoskeletal chest pain [Recovered/Resolved]
  - Restlessness [Recovered/Resolved]
  - Hospice care [Not Recovered/Not Resolved]
  - Dysgeusia [Unknown]
  - Dyspnoea [Unknown]
  - Hypopnoea [Unknown]
  - Asthenia [Unknown]
  - Somnolence [Recovering/Resolving]

NARRATIVE: CASE EVENT DATE: 2016
